FAERS Safety Report 6028080-0 (Version None)
Quarter: 2009Q1

REPORT INFORMATION
  Report Type: 
  Country: None (occurrence: None)
  Receive Date: 20090102
  Receipt Date: 20081222
  Transmission Date: 20090719
  Serious: Yes (Hospitalization, Other)
  Sender: FDA-Public Use
  Company Number: 2008SP003218

PATIENT
  Age: 65 Year
  Sex: Female

DRUGS (7)
  1. XOPENEX HFA [Suspect]
     Indication: ASTHMA
     Dosage: 90 UG; BID; INHALATION
     Route: 055
     Dates: start: 20080501
  2. XOPENEX HFA [Suspect]
     Indication: CHRONIC OBSTRUCTIVE PULMONARY DISEASE
     Dosage: 90 UG; BID; INHALATION
     Route: 055
     Dates: start: 20080501
  3. DEPAKOTE [Suspect]
     Indication: CONVULSION
     Dosage: 1000 MG; BID;
     Dates: start: 20080801, end: 20081201
  4. SINGULAIR/ 01362602/ (CON.) [Concomitant]
  5. SPIRIVA (CON.) [Concomitant]
  6. ALBUTEROL SULFATE /00139502/ (PREV.) [Concomitant]
  7. ADVAIR (PREV.) [Concomitant]

REACTIONS (8)
  - CONTUSION [None]
  - FALL [None]
  - GAIT DISTURBANCE [None]
  - GRAND MAL CONVULSION [None]
  - HEAD INJURY [None]
  - JOINT INJURY [None]
  - SKELETAL INJURY [None]
  - SOFT TISSUE INJURY [None]
